FAERS Safety Report 24332468 (Version 1)
Quarter: 2024Q3

REPORT INFORMATION
  Report Type: Other
  Country: US (occurrence: US)
  Receive Date: 20240918
  Receipt Date: 20240918
  Transmission Date: 20241017
  Serious: Yes (Life-Threatening)
  Sender: B BRAUN
  Company Number: US-B.Braun Medical Inc.-2161751

PATIENT
  Age: 42 Year
  Sex: Female

DRUGS (8)
  1. MANNITOL [Suspect]
     Active Substance: MANNITOL
     Indication: Cerebral oedema management
  2. SODIUM CHLORIDE [Suspect]
     Active Substance: SODIUM CHLORIDE
  3. CYCLOPHOSPHAMIDE [Concomitant]
     Active Substance: CYCLOPHOSPHAMIDE
  4. SILTUXIMAB [Concomitant]
     Active Substance: SILTUXIMAB
  5. METHYLPREDNISOLONE [Concomitant]
     Active Substance: METHYLPREDNISOLONE
  6. LEVETIRACETAM [Concomitant]
     Active Substance: LEVETIRACETAM
  7. DEXAMETHASONE [Concomitant]
     Active Substance: DEXAMETHASONE
  8. AXICABTAGENE CILOLEUCEL [Concomitant]
     Active Substance: AXICABTAGENE CILOLEUCEL

REACTIONS (1)
  - Drug ineffective [Unknown]
